FAERS Safety Report 9119517 (Version 1)
Quarter: 2013Q1

REPORT INFORMATION
  Report Type: Spontaneous
  Country: US (occurrence: None)
  Receive Date: 20130221
  Receipt Date: 20130221
  Transmission Date: 20140127
  Serious: No
  Sender: FDA-Public Use
  Company Number: None

PATIENT
  Sex: 0

DRUGS (2)
  1. LEVONORGESTREL AND ETHINYL ESTRADIOL LEVONORGESTREL AND ETHINYL ESTRADIOL [Suspect]
     Dosage: LUPIN PHARMACEUTICALS, INC. TABLET ORAL 0.15 MG/0.03 MG BOX 68180-843-13
     Route: 048
  2. LEVONORGESTREL AND ETHINYL ESTRADIOL LEVONORGESTREL AND ETHINYL ESTRADIOL [Suspect]
     Dosage: LUPIN PHARMACEUTICALS, INC. TABLET ORAL BOX 68180-848-13
     Route: 048

REACTIONS (1)
  - Medication error [None]
